FAERS Safety Report 21094010 (Version 2)
Quarter: 2022Q3

REPORT INFORMATION
  Report Type: Spontaneous
  Country: US (occurrence: US)
  Receive Date: 20220718
  Receipt Date: 20220816
  Transmission Date: 20221026
  Serious: No
  Sender: FDA-Public Use
  Company Number: US-BRISTOL-MYERS SQUIBB COMPANY-2022-011812

PATIENT
  Age: 78 Year
  Sex: Male

DRUGS (3)
  1. POMALYST [Suspect]
     Active Substance: POMALIDOMIDE
     Indication: Plasma cell myeloma
     Dosage: FREQUENCY- TAKE 1 CAPSULE BY MOUTH EVERY DAY FOR 14 DAYS OF A 28 DAY CYCLE.
     Route: 048
     Dates: start: 20220110
  2. POMALYST [Suspect]
     Active Substance: POMALIDOMIDE
     Dosage: TAKE 1 CAPSULE BY MOUTH DAILY FOR 14 DAYS
     Route: 048
     Dates: start: 20220110
  3. POMALYST [Suspect]
     Active Substance: POMALIDOMIDE
     Dosage: TAKE 1 CAPSULE BY MOUTH EVERY DAY FOR 14 DAYS
     Route: 048
     Dates: start: 20220111

REACTIONS (1)
  - Off label use [Unknown]
